FAERS Safety Report 9957583 (Version 2)
Quarter: 2014Q1

REPORT INFORMATION
  Report Type: Report from Study
  Country: US (occurrence: US)
  Receive Date: 20140304
  Receipt Date: 20140304
  Transmission Date: 20141002
  Serious: Yes (Other)
  Sender: FDA-Public Use
  Company Number: US-ABBVIE-13P-163-1075744-00

PATIENT
  Age: 84 Year
  Sex: Male
  Weight: 77.18 kg

DRUGS (5)
  1. HUMIRA PEN [Suspect]
     Indication: RHEUMATOID ARTHRITIS
     Route: 058
  2. TYLENOL [Concomitant]
     Indication: PAIN
  3. VITAMIN D NOS [Concomitant]
     Indication: VITAMIN D DEFICIENCY
  4. FOLIC ACID [Concomitant]
     Indication: RHEUMATOID ARTHRITIS
  5. METHOTREXATE [Concomitant]
     Indication: PRODUCT USED FOR UNKNOWN INDICATION

REACTIONS (2)
  - Squamous cell carcinoma of skin [Recovered/Resolved]
  - Tooth infection [Recovered/Resolved]
